FAERS Safety Report 25312379 (Version 2)
Quarter: 2025Q2

REPORT INFORMATION
  Report Type: Report from Study
  Country: DE (occurrence: DE)
  Receive Date: 20250514
  Receipt Date: 20250611
  Transmission Date: 20250716
  Serious: Yes (Hospitalization, Other)
  Sender: PFIZER
  Company Number: DE-BRISTOL-MYERS SQUIBB COMPANY-2025-061376

PATIENT
  Age: 63 Year
  Sex: Male

DRUGS (11)
  1. METHOTREXATE SODIUM [Suspect]
     Active Substance: METHOTREXATE SODIUM
     Dosage: 17.5 MG, WEEKLY
  2. ORENCIA [Suspect]
     Active Substance: ABATACEPT
     Indication: Rheumatic disorder
     Dosage: 125 MG, WEEKLY
     Route: 058
  3. FOLIC ACID [Concomitant]
     Active Substance: FOLIC ACID
  4. TORSEMIDE [Concomitant]
     Active Substance: TORSEMIDE
  5. RAMIPRIL [Concomitant]
     Active Substance: RAMIPRIL
  6. PREDNISOLONE [Concomitant]
     Active Substance: PREDNISOLONE
  7. PANTOPRAZOLE [Concomitant]
     Active Substance: PANTOPRAZOLE
  8. IBUPROFEN [Concomitant]
     Active Substance: IBUPROFEN
  9. METFORMIN [Concomitant]
     Active Substance: METFORMIN HYDROCHLORIDE
  10. CHOLECALCIFEROL [Concomitant]
     Active Substance: CHOLECALCIFEROL
  11. EMPAGLIFLOZIN [Concomitant]
     Active Substance: EMPAGLIFLOZIN

REACTIONS (2)
  - Pneumonia [Recovered/Resolved]
  - Pleurisy [Recovered/Resolved]

NARRATIVE: CASE EVENT DATE: 20250130
